FAERS Safety Report 9005072 (Version 1)
Quarter: 2013Q1

REPORT INFORMATION
  Report Type: Spontaneous
  Country: US (occurrence: None)
  Receive Date: 20130107
  Receipt Date: 20130107
  Transmission Date: 20140127
  Serious: Yes (Other)
  Sender: FDA-Public Use
  Company Number: None

PATIENT
  Sex: Female
  Weight: 67.13 kg

DRUGS (1)
  1. DONEPEZIL HYDROCHLORIDE [Suspect]
     Indication: MEMORY IMPAIRMENT
     Dosage: 10 MG ONE DAILY
     Dates: end: 2012

REACTIONS (3)
  - Abdominal discomfort [None]
  - Vomiting [None]
  - Product substitution issue [None]
